FAERS Safety Report 10174060 (Version 1)
Quarter: 2014Q2

REPORT INFORMATION
  Report Type: Spontaneous
  Country: US (occurrence: None)
  Receive Date: 20140514
  Receipt Date: 20140514
  Transmission Date: 20141212
  Serious: Yes (Disabling)
  Sender: FDA-Public Use
  Company Number: None

PATIENT
  Age: 67 Year
  Sex: Female
  Weight: 95.26 kg

DRUGS (2)
  1. DEXILANT [Suspect]
     Indication: DYSPEPSIA
     Dosage: 1 CAPSULE, ONCE DAILY, TAKEN BY MOUTH
     Route: 048
     Dates: start: 20140416, end: 20140513
  2. DEXILANT [Suspect]
     Indication: DYSPEPSIA
     Dosage: 1 CAPSULE, ONCE DAILY, TAKEN BY MOUTH
     Route: 048
     Dates: start: 20140416, end: 20140513

REACTIONS (3)
  - Muscle spasms [None]
  - Nausea [None]
  - Diarrhoea [None]
